FAERS Safety Report 8195670-9 (Version None)
Quarter: 2012Q1

REPORT INFORMATION
  Report Type: 
  Country: None (occurrence: None)
  Receive Date: 20120308
  Receipt Date: 20120224
  Transmission Date: 20120608
  Serious: Yes (Other)
  Sender: FDA-Public Use
  Company Number: SE-ELI_LILLY_AND_COMPANY-SE201202008289

PATIENT
  Age: 14 Year
  Sex: Male

DRUGS (2)
  1. CONCERTA [Concomitant]
     Dosage: 54 MG, QD
     Route: 048
     Dates: start: 20110806, end: 20111205
  2. STRATTERA [Suspect]
     Dosage: 40 MG, QD
     Route: 048
     Dates: start: 20111205, end: 20120126

REACTIONS (4)
  - SUICIDAL IDEATION [None]
  - TRANSAMINASES INCREASED [None]
  - PANCYTOPENIA [None]
  - WEIGHT DECREASED [None]
